FAERS Safety Report 13785346 (Version 1)
Quarter: 2017Q3

REPORT INFORMATION
  Report Type: Spontaneous
  Country: IT (occurrence: IT)
  Receive Date: 20170725
  Receipt Date: 20170725
  Transmission Date: 20171127
  Serious: Yes (Life-Threatening, Hospitalization, Other)
  Sender: FDA-Public Use
  Company Number: IT-AUROBINDO-AUR-APL-2017-37601

PATIENT
  Age: 28 Year
  Sex: Male

DRUGS (2)
  1. OXYGEN. [Suspect]
     Active Substance: OXYGEN
     Indication: RESPIRATORY FAILURE
     Route: 065
  2. AMOXICILLIN+CLAVULANIC ACID [Suspect]
     Active Substance: AMOXICILLIN\CLAVULANIC ACID
     Indication: RESPIRATORY FAILURE
     Route: 065

REACTIONS (1)
  - Drug ineffective [Unknown]
